FAERS Safety Report 5081991-5 (Version None)
Quarter: 2006Q3

REPORT INFORMATION
  Report Type: 
  Country: None (occurrence: None)
  Receive Date: 20060811
  Receipt Date: 20060731
  Transmission Date: 20061208
  Serious: Yes (Death, Other)
  Sender: FDA-Public Use
  Company Number: 2006093261

PATIENT
  Age: 73 Year
  Sex: Male

DRUGS (2)
  1. HEPARIN SODIUM [Suspect]
     Indication: HAEMODIALYSIS
     Dosage: 500-1000 IU/H
  2. ACTIVASE [Concomitant]

REACTIONS (12)
  - ACCIDENTAL EXPOSURE [None]
  - ACUTE RESPIRATORY DISTRESS SYNDROME [None]
  - ANAPHYLACTOID REACTION [None]
  - ANGIOPATHY [None]
  - BLOOD PRESSURE IMMEASURABLE [None]
  - CARDIAC ARREST [None]
  - DEVICE MALFUNCTION [None]
  - HEPARIN-INDUCED THROMBOCYTOPENIA [None]
  - HYPOTENSION [None]
  - HYPOXIA [None]
  - INJURY [None]
  - VENOUS PRESSURE INCREASED [None]
